FAERS Safety Report 16169275 (Version 1)
Quarter: 2019Q2

REPORT INFORMATION
  Report Type: Other
  Country: None (occurrence: PT)
  Receive Date: 20190408
  Receipt Date: 20190408
  Transmission Date: 20190711
  Serious: Yes (Other)
  Sender: FDA-Public Use
  Company Number: PT-FDC LIMITED-2065449

PATIENT
  Age: 47 Year
  Sex: Male

DRUGS (2)
  1. INDOMETHACIN. [Interacting]
     Active Substance: INDOMETHACIN
     Route: 065
  2. CIPROFLOXACIN. [Suspect]
     Active Substance: CIPROFLOXACIN
     Indication: PRODUCT USED FOR UNKNOWN INDICATION
     Route: 065

REACTIONS (2)
  - Delirium [Recovered/Resolved]
  - Drug interaction [Unknown]
